FAERS Safety Report 6174931-9 (Version None)
Quarter: 2009Q2

REPORT INFORMATION
  Report Type: 
  Country: None (occurrence: None)
  Receive Date: 20090430
  Receipt Date: 20081013
  Transmission Date: 20091009
  Serious: No
  Sender: FDA-Public Use
  Company Number: US-ASTRAZENECA-2008UW22539

PATIENT
  Sex: Female

DRUGS (1)
  1. NEXIUM [Suspect]
     Indication: REFLUX OESOPHAGITIS
     Route: 048

REACTIONS (3)
  - DYSPNOEA [None]
  - RASH [None]
  - WHEEZING [None]
